FAERS Safety Report 12134185 (Version 2)
Quarter: 2017Q3

REPORT INFORMATION
  Report Type: Spontaneous
  Country: US (occurrence: US)
  Receive Date: 20160301
  Receipt Date: 20170926
  Transmission Date: 20171127
  Serious: Yes (Death, Hospitalization)
  Sender: FDA-Public Use
  Company Number: US-VIFOR (INTERNATIONAL) INC.-VIT-2016-01019

PATIENT
  Age: 45 Year
  Sex: Male
  Weight: 92.7 kg

DRUGS (1)
  1. MIRCERA [Suspect]
     Active Substance: METHOXY POLYETHYLENE GLYCOL-EPOETIN BETA
     Indication: NEPHROGENIC ANAEMIA
     Route: 040
     Dates: start: 20160215, end: 20160215

REACTIONS (7)
  - Dyspnoea [Unknown]
  - Irregular breathing [Unknown]
  - Vomiting [Unknown]
  - Death [Fatal]
  - Unresponsive to stimuli [Unknown]
  - Seizure [Unknown]
  - Pulse absent [Unknown]

NARRATIVE: CASE EVENT DATE: 20160215
